FAERS Safety Report 9531213 (Version 1)
Quarter: 2013Q3

REPORT INFORMATION
  Report Type: Spontaneous
  Country: US (occurrence: None)
  Receive Date: 20130916
  Receipt Date: 20130916
  Transmission Date: 20140515
  Serious: No
  Sender: FDA-Public Use
  Company Number: None

PATIENT
  Age: 65 Year
  Sex: Female

DRUGS (7)
  1. NASACORT [Suspect]
     Indication: NASAL CONGESTION
     Dates: start: 20090101, end: 20130912
  2. TRIAMCINOLONE ACETONIDE [Suspect]
  3. METROPOLOL [Concomitant]
  4. UNITROID [Concomitant]
  5. CENTRUM SILVER [Concomitant]
  6. VITAMIN D [Concomitant]
  7. CALCIUM [Concomitant]

REACTIONS (1)
  - Cataract [None]
